FAERS Safety Report 12806020 (Version 7)
Quarter: 2020Q2

REPORT INFORMATION
  Report Type: Spontaneous
  Country: US (occurrence: US)
  Receive Date: 20161004
  Receipt Date: 20200514
  Transmission Date: 20200713
  Serious: Yes (Other)
  Sender: FDA-Public Use
  Company Number: US-PFIZER INC-2016456037

PATIENT
  Age: 63 Year
  Sex: Female
  Weight: 102 kg

DRUGS (3)
  1. PHENOBARBITAL. [Concomitant]
     Active Substance: PHENOBARBITAL
     Indication: SEIZURE
     Dosage: 120 MG, UNK
  2. RAPAMUNE [Suspect]
     Active Substance: SIROLIMUS
     Indication: DERMATOMYOSITIS
     Dosage: 2 MG, 1X/DAY
     Route: 048
  3. PREDNISONE. [Concomitant]
     Active Substance: PREDNISONE
     Dosage: UNK

REACTIONS (4)
  - Rash [Unknown]
  - Femur fracture [Recovering/Resolving]
  - Product use in unapproved indication [Unknown]
  - Off label use [Unknown]
